FAERS Safety Report 4457156-4 (Version None)
Quarter: 2004Q3

REPORT INFORMATION
  Report Type: 
  Country: None (occurrence: None)
  Receive Date: 20040923
  Receipt Date: 20040831
  Transmission Date: 20050211
  Serious: Yes (Death)
  Sender: FDA-Public Use
  Company Number: PHFR2004GB03353

PATIENT
  Age: 21 Year
  Sex: Male
  Weight: 57 kg

DRUGS (8)
  1. CARBAMAZEPINE [Suspect]
     Indication: EPILEPSY
     Dosage: 200 MG, BID
     Route: 048
  2. CARBAMAZEPINE [Suspect]
     Dosage: 400 MG, BID
     Route: 048
  3. CARBAMAZEPINE [Suspect]
     Dosage: 400 MG MORNING + 600 MG AT NIGHT
     Route: 048
  4. CARBAMAZEPINE [Suspect]
     Dosage: 600 MG, BID
     Route: 048
  5. LAMOTRIGINE [Suspect]
     Indication: EPILEPSY
     Dosage: 200 MG, BID
     Route: 048
  6. LAMOTRIGINE [Suspect]
     Dosage: 100MG/DAY
     Route: 048
  7. LAMOTRIGINE [Suspect]
     Dosage: 300 MG, BID
     Route: 048
  8. LAMOTRIGINE [Suspect]
     Dosage: 200 MG, BID

REACTIONS (11)
  - BLINDNESS TRANSIENT [None]
  - BRAIN DAMAGE [None]
  - BRAIN OEDEMA [None]
  - CONVULSION [None]
  - ELECTROCARDIOGRAM ABNORMAL [None]
  - EPILEPSY [None]
  - INFECTION [None]
  - SEPSIS [None]
  - SUDDEN DEATH [None]
  - VISUAL DISTURBANCE [None]
  - VOMITING [None]
